FAERS Safety Report 10993522 (Version 1)
Quarter: 2015Q2

REPORT INFORMATION
  Report Type: Spontaneous
  Country: US (occurrence: None)
  Receive Date: 20150406
  Receipt Date: 20150406
  Transmission Date: 20150821
  Serious: Yes (Other)
  Sender: FDA-Public Use
  Company Number: None

PATIENT
  Age: 66 Year
  Sex: Female
  Weight: 59.88 kg

DRUGS (7)
  1. ALBUTERAL [Concomitant]
     Active Substance: ALBUTEROL
  2. LINZESS [Suspect]
     Active Substance: LINACLOTIDE
     Indication: ABDOMINAL PAIN
     Dosage: 1 CAP  ONCE DAILY  TAKEN BY MOUTH
     Route: 048
     Dates: start: 20150127, end: 20150405
  3. LINZESS [Suspect]
     Active Substance: LINACLOTIDE
     Indication: ABDOMINAL DISTENSION
     Dosage: 1 CAP  ONCE DAILY  TAKEN BY MOUTH
     Route: 048
     Dates: start: 20150127, end: 20150405
  4. BEANO [Concomitant]
     Active Substance: ASPERGILLUS NIGER .ALPHA.-GALACTOSIDASE
  5. CELEXA [Concomitant]
     Active Substance: CITALOPRAM HYDROBROMIDE
  6. LINZESS [Suspect]
     Active Substance: LINACLOTIDE
     Indication: CONSTIPATION
     Dosage: 1 CAP  ONCE DAILY  TAKEN BY MOUTH
     Route: 048
     Dates: start: 20150127, end: 20150405
  7. LINZESS [Suspect]
     Active Substance: LINACLOTIDE
     Indication: IRRITABLE BOWEL SYNDROME
     Dosage: 1 CAP  ONCE DAILY  TAKEN BY MOUTH
     Route: 048
     Dates: start: 20150127, end: 20150405

REACTIONS (9)
  - Urine flow decreased [None]
  - Flatulence [None]
  - Dysuria [None]
  - Gastrointestinal disorder [None]
  - Painful defaecation [None]
  - Diarrhoea [None]
  - Abdominal pain [None]
  - Abdominal distension [None]
  - Myalgia [None]

NARRATIVE: CASE EVENT DATE: 20150405
